FAERS Safety Report 7525022-3 (Version None)
Quarter: 2011Q2

REPORT INFORMATION
  Report Type: 
  Country: None (occurrence: None)
  Receive Date: 20110606
  Receipt Date: 20110526
  Transmission Date: 20111010
  Serious: Yes (Hospitalization, Other)
  Sender: FDA-Public Use
  Company Number: JP-NOVOPROD-328276

PATIENT
  Age: 67 Year
  Sex: Female
  Weight: 59 kg

DRUGS (14)
  1. VICTOZA [Suspect]
     Dosage: 0.3 MG, QD
     Route: 058
     Dates: start: 20110519
  2. ISOSORBIDE DINITRATE [Concomitant]
     Dosage: 40 MG, QD
     Route: 048
  3. VICTOZA [Suspect]
     Dosage: 0.9 MG, QD
     Route: 058
     Dates: start: 20110428
  4. SIGMART [Concomitant]
     Dosage: 30 MG, QD
     Route: 048
  5. SELBEX [Concomitant]
     Dosage: 150 MG, QD
     Route: 048
  6. AMARYL [Concomitant]
     Dosage: 1 MG, QD
     Dates: start: 20110426, end: 20110520
  7. ASPIRIN [Concomitant]
     Dosage: 200 MG, QD
     Route: 048
  8. LIPOVAS                            /00499301/ [Concomitant]
     Dosage: 5 MG, QD
     Route: 048
  9. TANATRIL [Concomitant]
     Dosage: 5 MG, QD
     Route: 048
  10. AMLODIPINE [Concomitant]
     Dosage: 5 MG, QD
     Route: 048
  11. MELBIN                             /00082702/ [Concomitant]
     Dosage: 500 MG, QD
     Dates: start: 20110412
  12. TICLOPIDINE HCL [Concomitant]
     Dosage: 200 MG, QD
     Route: 048
  13. VICTOZA [Suspect]
     Indication: TYPE 2 DIABETES MELLITUS
     Dosage: 0.3 MG, QD
     Route: 058
     Dates: start: 20110420
  14. VICTOZA [Suspect]
     Dosage: 0.6 MG, QD
     Route: 058
     Dates: start: 20110424

REACTIONS (2)
  - CONSTIPATION [None]
  - APPENDICITIS [None]
